FAERS Safety Report 9359765 (Version 1)
Quarter: 2013Q2

REPORT INFORMATION
  Report Type: Report from Study
  Country: US (occurrence: US)
  Receive Date: 20130621
  Receipt Date: 20130621
  Transmission Date: 20140414
  Serious: Yes (Death)
  Sender: FDA-Public Use
  Company Number: US-ROCHE-1239581

PATIENT
  Age: 56 Year
  Sex: Male
  Weight: 94.43 kg

DRUGS (7)
  1. AVASTIN [Suspect]
     Indication: LUNG NEOPLASM MALIGNANT
     Route: 065
     Dates: start: 20130521, end: 20130611
  2. CARBOPLATIN [Concomitant]
     Route: 065
  3. TAXOL [Concomitant]
     Route: 065
  4. ALOXI [Concomitant]
     Route: 065
  5. PEPCID [Concomitant]
     Route: 042
  6. DECADRON [Concomitant]
     Route: 065
  7. BENADRYL + DYCLONE MOUTHRINSE [Concomitant]
     Route: 042

REACTIONS (5)
  - Death [Fatal]
  - Local swelling [Recovered/Resolved]
  - Dyspnoea exertional [Unknown]
  - Nephropathy [Unknown]
  - Limb injury [Unknown]
